FAERS Safety Report 5766461-0 (Version None)
Quarter: 2008Q2

REPORT INFORMATION
  Report Type: 
  Country: None (occurrence: None)
  Receive Date: 20080606
  Receipt Date: 20080526
  Transmission Date: 20081010
  Serious: Yes (Death, Hospitalization)
  Sender: FDA-Public Use
  Company Number: 19442

PATIENT
  Age: 11 Year
  Sex: Male

DRUGS (5)
  1. DOXORUBICIN HCL [Suspect]
     Indication: ACUTE LYMPHOCYTIC LEUKAEMIA
  2. VINCRISTINE [Suspect]
     Indication: ACUTE LYMPHOCYTIC LEUKAEMIA
  3. METHOTREXATE [Suspect]
     Indication: ACUTE LYMPHOCYTIC LEUKAEMIA
  4. ASPARAGINASE [Suspect]
     Indication: ACUTE LYMPHOCYTIC LEUKAEMIA
  5. PREDNISONE TAB [Suspect]
     Indication: ACUTE LYMPHOCYTIC LEUKAEMIA

REACTIONS (21)
  - ABSCESS FUNGAL [None]
  - ATELECTASIS [None]
  - BIOPSY LIVER ABNORMAL [None]
  - BLOOD CULTURE POSITIVE [None]
  - CATHETER RELATED INFECTION [None]
  - DIFFUSE ALVEOLAR DAMAGE [None]
  - FEBRILE NEUTROPENIA [None]
  - FUNGAL INFECTION [None]
  - FUNGUS URINE TEST POSITIVE [None]
  - GASTROINTESTINAL FUNGAL INFECTION [None]
  - HEPATIC INFECTION FUNGAL [None]
  - LEUKAEMIA RECURRENT [None]
  - MUCOSAL INFLAMMATION [None]
  - MULTI-ORGAN FAILURE [None]
  - NEUTROPENIA [None]
  - PULMONARY HAEMORRHAGE [None]
  - RESPIRATORY DISTRESS [None]
  - SPLENIC INFECTION FUNGAL [None]
  - STREPTOCOCCAL INFECTION [None]
  - TRICHOSPORON INFECTION [None]
  - UROGENITAL INFECTION FUNGAL [None]
